FAERS Safety Report 5565099-8 (Version None)
Quarter: 2007Q4

REPORT INFORMATION
  Report Type: 
  Country: None (occurrence: None)
  Receive Date: 20071213
  Receipt Date: 20071203
  Transmission Date: 20080405
  Serious: Yes (Hospitalization)
  Sender: FDA-Public Use
  Company Number: 236651K07USA

PATIENT
  Age: 64 Year
  Sex: Female

DRUGS (12)
  1. REBIF [Suspect]
     Indication: MULTIPLE SCLEROSIS
     Dosage: 44 MCG, 3 IN 1 WEEKS, SUBCUTANEOUS
     Route: 058
     Dates: start: 20070328
  2. COPAXONE [Suspect]
  3. ALEVE [Concomitant]
  4. LYRICA [Concomitant]
  5. DEPAKOTE [Concomitant]
  6. ZOCOR [Concomitant]
  7. XANAX [Concomitant]
  8. TIAZAC [Concomitant]
  9. OXYBUTYNIN (OXYBUTYNIN /00538901/) [Concomitant]
  10. COUMADIN [Concomitant]
  11. BACLOFEN [Concomitant]
  12. AMANTADINE (AMANTADINE /00055901/) [Concomitant]

REACTIONS (1)
  - CONVULSION [None]
